FAERS Safety Report 8875798 (Version 2)
Quarter: 2012Q4

REPORT INFORMATION
  Report Type: Report from Study
  Country: US (occurrence: US)
  Receive Date: 20121023
  Receipt Date: 20121228
  Transmission Date: 20130627
  Serious: Yes (Disabling)
  Sender: FDA-Public Use
  Company Number: US-ROCHE-1147484

PATIENT
  Sex: Male
  Weight: 66.74 kg

DRUGS (8)
  1. OMALIZUMAB [Suspect]
     Indication: ASTHMA
     Dosage: 2 Injection
     Route: 058
     Dates: start: 2005
  2. ASMANEX [Concomitant]
  3. DULERA [Concomitant]
  4. XOPENEX [Concomitant]
  5. VERAMYST [Concomitant]
  6. SINGULAIR [Concomitant]
  7. ATARAX [Concomitant]
  8. ALBUTEROL [Concomitant]

REACTIONS (1)
  - Anaphylactic reaction [Unknown]
